FAERS Safety Report 7246421-3 (Version None)
Quarter: 2011Q1

REPORT INFORMATION
  Report Type: 
  Country: None (occurrence: None)
  Receive Date: 20110126
  Receipt Date: 20110113
  Transmission Date: 20110831
  Serious: Yes (Other)
  Sender: FDA-Public Use
  Company Number: AU-AMGEN LTD.-QUU443325

PATIENT
  Sex: Male

DRUGS (2)
  1. NPLATE [Suspect]
     Indication: PRODUCT USED FOR UNKNOWN INDICATION
     Dosage: 10 A?G/KG, UNK
     Dates: start: 20090101
  2. LAMIVUDINE [Concomitant]

REACTIONS (2)
  - PLATELET COUNT DECREASED [None]
  - DRUG ADMINISTRATION ERROR [None]
